FAERS Safety Report 9806118 (Version 1)
Quarter: 2014Q1

REPORT INFORMATION
  Report Type: Report from Study
  Country: GB (occurrence: GB)
  Receive Date: 20140109
  Receipt Date: 20140109
  Transmission Date: 20141002
  Serious: Yes (Death)
  Sender: FDA-Public Use
  Company Number: GB-ASTRAZENECA-2013SE57004

PATIENT
  Age: 20613 Day
  Sex: Male

DRUGS (1)
  1. BRILIQUE [Suspect]
     Indication: ANTIPLATELET THERAPY
     Route: 048
     Dates: start: 20130605, end: 20130612

REACTIONS (1)
  - Death [Fatal]
